FAERS Safety Report 4744188-1 (Version None)
Quarter: 2005Q3

REPORT INFORMATION
  Report Type: 
  Country: None (occurrence: None)
  Receive Date: 20050809
  Receipt Date: 20050729
  Transmission Date: 20060218
  Serious: Yes (Death)
  Sender: FDA-Public Use
  Company Number: MEDI-0003578

PATIENT
  Sex: Male

DRUGS (1)
  1. ETHYOL [Suspect]

REACTIONS (3)
  - MYOCARDIAL INFARCTION [None]
  - PYREXIA [None]
  - RASH [None]
